FAERS Safety Report 7405438-6 (Version None)
Quarter: 2011Q2

REPORT INFORMATION
  Report Type: 
  Country: None (occurrence: None)
  Receive Date: 20110411
  Receipt Date: 20110405
  Transmission Date: 20111010
  Serious: Yes (Other)
  Sender: FDA-Public Use
  Company Number: US-AMGEN-QUU321899

PATIENT
  Age: 35 Year
  Sex: Female

DRUGS (4)
  1. IBUPROFEN [Concomitant]
     Dosage: UNK UNK, PRN
  2. PREDNISONE [Concomitant]
     Dosage: 10 MG, QD
     Route: 048
  3. PRENATAL VITAMINS [Concomitant]
     Dosage: UNK UNK, QD
     Route: 048
  4. ENBREL [Suspect]
     Indication: RHEUMATOID ARTHRITIS
     Dosage: 25 MG, 2 TIMES/WK
     Route: 058
     Dates: start: 20040819

REACTIONS (2)
  - PREMATURE RUPTURE OF MEMBRANES [None]
  - PREMATURE LABOUR [None]
